FAERS Safety Report 15551345 (Version 1)
Quarter: 2020Q3

REPORT INFORMATION
  Report Type: Spontaneous
  Country: ZA (occurrence: ZA)
  Receive Date: 20181025
  Receipt Date: 20181025
  Transmission Date: 20201104
  Serious: Yes (Death, Other)
  Sender: FDA-Public Use
  Company Number: IND-ZA-009507513-1810ZAF001391

PATIENT
  Age: 77 Year
  Sex: Male

DRUGS (1)
  1. EXINEF [Suspect]
     Active Substance: ETORICOXIB
     Indication: GOUT
     Route: 048

REACTIONS (3)
  - Death [Fatal]
  - Vomiting [Unknown]
  - Gastric haemorrhage [Unknown]
